FAERS Safety Report 23117072 (Version 3)
Quarter: 2024Q1

REPORT INFORMATION
  Report Type: Spontaneous
  Country: JP (occurrence: None)
  Receive Date: 20231027
  Receipt Date: 20240308
  Transmission Date: 20240409
  Serious: Yes (Hospitalization)
  Sender: FDA-Public Use
  Company Number: 2023A241453

PATIENT
  Age: 9 Year
  Sex: Female
  Weight: 27 kg

DRUGS (16)
  1. PULMICORT RESPULES [Suspect]
     Active Substance: BUDESONIDE
     Indication: Asthma
     Route: 055
  2. PULMICORT RESPULES [Suspect]
     Active Substance: BUDESONIDE
     Indication: Asthma
     Route: 055
  3. PRANLUKAST [Concomitant]
     Active Substance: PRANLUKAST
     Indication: Asthma
     Route: 048
  4. CARBOCYSTEINE [Concomitant]
     Active Substance: CARBOCYSTEINE
     Indication: Asthma
     Route: 048
  5. AMBROXOL HYDROCHLORIDE [Concomitant]
     Active Substance: AMBROXOL HYDROCHLORIDE
     Indication: Asthma
     Route: 048
  6. FAMOTIDINE [Concomitant]
     Active Substance: FAMOTIDINE
     Indication: Cerebral palsy
     Route: 048
  7. LEVOCARNITINE [Concomitant]
     Active Substance: LEVOCARNITINE
     Indication: Cerebral palsy
     Route: 048
  8. MIYA-BM [Concomitant]
     Active Substance: CLOSTRIDIUM BUTYRICUM SPORES STRAIN M-55
     Indication: Cerebral palsy
     Route: 048
  9. HERBAL NOS [Concomitant]
     Active Substance: HERBALS
     Indication: Cerebral palsy
     Route: 048
  10. MAGNESIUM OXIDE [Concomitant]
     Active Substance: MAGNESIUM OXIDE
     Indication: Cerebral palsy
     Route: 048
  11. BISACODYL [Concomitant]
     Active Substance: BISACODYL
     Indication: Cerebral palsy
     Dosage: 2.0MG UNKNOWN
     Route: 054
  12. LEVETIRACETAM [Concomitant]
     Active Substance: LEVETIRACETAM
     Indication: Cerebral palsy
     Route: 048
  13. DEPAKENE [Concomitant]
     Active Substance: VALPROIC ACID
     Indication: Cerebral palsy
     Route: 048
  14. ENEVO [Concomitant]
     Indication: Cerebral palsy
     Route: 048
  15. PROCATEROL HYDROCHLORIDE [Concomitant]
     Active Substance: PROCATEROL HYDROCHLORIDE
     Indication: Asthma
     Route: 055
  16. PIPERACILLIN SODIUM [Concomitant]
     Active Substance: PIPERACILLIN SODIUM

REACTIONS (1)
  - Pneumonia aspiration [Recovering/Resolving]

NARRATIVE: CASE EVENT DATE: 20231006
